FAERS Safety Report 15949540 (Version 1)
Quarter: 2019Q1

REPORT INFORMATION
  Report Type: Spontaneous
  Country: AU (occurrence: AU)
  Receive Date: 20190212
  Receipt Date: 20190212
  Transmission Date: 20190417
  Serious: Yes (Other)
  Sender: FDA-Public Use
  Company Number: PHHY2019AU029362

PATIENT

DRUGS (2)
  1. AZACITIDINE. [Suspect]
     Active Substance: AZACITIDINE
     Indication: THROMBOCYTOPENIA
     Dosage: 75 MG/M2, UNK
     Route: 065
  2. ELTROMBOPAG [Suspect]
     Active Substance: ELTROMBOPAG
     Indication: THROMBOCYTOPENIA
     Dosage: 50 MG, QD
     Route: 048

REACTIONS (2)
  - Acute myeloid leukaemia [Unknown]
  - Concomitant disease aggravated [Unknown]
